FAERS Safety Report 8872723 (Version 3)
Quarter: 2013Q1

REPORT INFORMATION
  Report Type: Spontaneous
  Country: BR (occurrence: BR)
  Receive Date: 20121030
  Receipt Date: 20130307
  Transmission Date: 20140127
  Serious: Yes (Life-Threatening, Hospitalization)
  Sender: FDA-Public Use
  Company Number: BR-ROCHE-1148802

PATIENT
  Age: 37 Year
  Sex: Male

DRUGS (3)
  1. ACTEMRA [Suspect]
     Indication: RHEUMATOID ARTHRITIS
     Route: 065
     Dates: start: 20121019
  2. METHOTREXATE [Suspect]
     Indication: PRODUCT USED FOR UNKNOWN INDICATION
     Route: 065
  3. ACTONEL [Concomitant]
     Route: 065
     Dates: start: 201207

REACTIONS (5)
  - Dizziness [Not Recovered/Not Resolved]
  - Haematemesis [Not Recovered/Not Resolved]
  - Dizziness [Not Recovered/Not Resolved]
  - Melaena [Not Recovered/Not Resolved]
  - Ulcer [Recovered/Resolved]
